FAERS Safety Report 10406804 (Version 2)
Quarter: 2014Q3

REPORT INFORMATION
  Report Type: Spontaneous
  Country: US (occurrence: US)
  Receive Date: 20140825
  Receipt Date: 20140902
  Transmission Date: 20150326
  Serious: No
  Sender: FDA-Public Use
  Company Number: US-PFIZER INC-2014232364

PATIENT
  Age: 76 Year
  Sex: Female
  Weight: 63.49 kg

DRUGS (3)
  1. VITAMIN D [Concomitant]
     Active Substance: CHOLECALCIFEROL
     Indication: BONE DISORDER
     Dosage: UNK
  2. NEURONTIN [Suspect]
     Active Substance: GABAPENTIN
     Dosage: 300 MG, 5X/DAY (BY TAKING ONE IN THE MORNING ONE IN THE AFTERNOON AND THREE AT BED TIME)
     Route: 048
     Dates: start: 20140819
  3. NEURONTIN [Suspect]
     Active Substance: GABAPENTIN
     Dosage: 300 MG, 2X/DAY
     Dates: start: 20140819, end: 20140819

REACTIONS (8)
  - Dyspnoea [Unknown]
  - Reaction to drug excipients [Unknown]
  - Nausea [Unknown]
  - Off label use [Unknown]
  - Burning sensation [Unknown]
  - Malaise [Unknown]
  - Headache [Unknown]
  - Hyperhidrosis [Unknown]

NARRATIVE: CASE EVENT DATE: 20140819
